FAERS Safety Report 8400869-X (Version None)
Quarter: 2012Q2

REPORT INFORMATION
  Report Type: 
  Country: None (occurrence: None)
  Receive Date: 20120601
  Receipt Date: 20090413
  Transmission Date: 20120825
  Serious: Yes (Hospitalization, Other)
  Sender: FDA-Public Use
  Company Number: JP-BRISTOL-MYERS SQUIBB COMPANY-14448245

PATIENT
  Age: 53 Year
  Sex: Female
  Weight: 36 kg

DRUGS (5)
  1. PURSENNID [Concomitant]
     Dosage: FORMULATION-TABS
     Dates: start: 20080912, end: 20081118
  2. AMLODIPINE [Concomitant]
     Dosage: FORMULATION-TABLET
     Dates: start: 20080827, end: 20081118
  3. CEFAZOLIN SODIUM [Concomitant]
     Dosage: FORM=TABS
     Dates: start: 20080804, end: 20081118
  4. ABILIFY [Suspect]
     Indication: SCHIZOPHRENIA, PARANOID TYPE
     Dosage: 08SEP-18SEP08(11D)6MG,19SEP-02OCT08(14D)12MG;03OCT-04NOV08(33DAYS)15MG;05NOV-26NOV08(22DAYS)12MG
     Route: 048
     Dates: start: 20080908, end: 20081126
  5. SLOW-K [Concomitant]
     Dosage: FORM=TABS
     Dates: start: 20080805, end: 20081107

REACTIONS (7)
  - CONTUSION [None]
  - INAPPROPRIATE ANTIDIURETIC HORMONE SECRETION [None]
  - DECREASED APPETITE [None]
  - FRACTURE [None]
  - CONSTIPATION [None]
  - HEAD INJURY [None]
  - DIARRHOEA [None]
